FAERS Safety Report 21308771 (Version 4)
Quarter: 2025Q3

REPORT INFORMATION
  Report Type: Report from Study
  Country: GB (occurrence: GB)
  Receive Date: 20220908
  Receipt Date: 20250729
  Transmission Date: 20251021
  Serious: Yes (Hospitalization, Other)
  Sender: ROCHE
  Company Number: GB-ROCHE-2876424

PATIENT
  Sex: Male

DRUGS (2)
  1. TOCILIZUMAB [Suspect]
     Active Substance: TOCILIZUMAB
     Indication: Rheumatoid arthritis
     Dosage: 162MG/0.9ML TO BE TAKEN ONCE EVERY WEEK
     Route: 058
     Dates: start: 202008, end: 202109
  2. TOCILIZUMAB [Suspect]
     Active Substance: TOCILIZUMAB
     Route: 058
     Dates: start: 20200821

REACTIONS (4)
  - Nephrolithiasis [Unknown]
  - Renal disorder [Unknown]
  - Localised infection [Unknown]
  - Skin cancer [Unknown]
